FAERS Safety Report 7433765-5 (Version None)
Quarter: 2011Q2

REPORT INFORMATION
  Report Type: 
  Country: None (occurrence: None)
  Receive Date: 20110425
  Receipt Date: 20110414
  Transmission Date: 20111010
  Serious: Yes (Death, Hospitalization, Other)
  Sender: FDA-Public Use
  Company Number: US-BIOGENIDEC-2010BI043220

PATIENT
  Age: 49 Year
  Sex: Female

DRUGS (1)
  1. TYSABRI [Suspect]
     Indication: MULTIPLE SCLEROSIS
     Route: 042
     Dates: start: 20090610

REACTIONS (6)
  - DISSEMINATED INTRAVASCULAR COAGULATION [None]
  - PYREXIA [None]
  - SEPSIS [None]
  - CARDIAC ARREST [None]
  - DECUBITUS ULCER [None]
  - RESPIRATORY FAILURE [None]
